FAERS Safety Report 4992985-X (Version None)
Quarter: 2006Q1

REPORT INFORMATION
  Report Type: 
  Country: None (occurrence: None)
  Receive Date: 20060313
  Receipt Date: 20060120
  Transmission Date: 20060701
  Serious: No
  Sender: FDA-Public Use
  Company Number: 2006-BP-00191BP

PATIENT
  Sex: Female

DRUGS (3)
  1. SPIRIVA [Suspect]
     Indication: ASTHMA
     Dosage: 18 MCG, IH
     Route: 055
     Dates: start: 20051201
  2. SPIRIVA [Suspect]
  3. ALBUTEROL SULFATE AUTOHALER [Concomitant]

REACTIONS (1)
  - DRUG INEFFECTIVE [None]
